FAERS Safety Report 5908869-6 (Version None)
Quarter: 2008Q4

REPORT INFORMATION
  Report Type: 
  Country: None (occurrence: None)
  Receive Date: 20081006
  Receipt Date: 20080928
  Transmission Date: 20090506
  Serious: Yes (Other)
  Sender: FDA-Public Use
  Company Number: US-GENENTECH-268158

PATIENT
  Age: 64 Year
  Sex: Female

DRUGS (8)
  1. RITUXAN [Suspect]
     Indication: B-CELL LYMPHOMA
     Dosage: 500 MG, Q3W
     Route: 042
     Dates: start: 20080624
  2. RITUXAN [Suspect]
     Dosage: 500 MG, 1/MONTH
     Dates: start: 20080905
  3. FLUDARABINE PHOSPHATE [Concomitant]
     Indication: B-CELL LYMPHOMA
  4. CYTOXAN [Concomitant]
     Indication: B-CELL LYMPHOMA
  5. TYLENOL (CAPLET) [Concomitant]
     Indication: PREMEDICATION
  6. COMPAZINE [Concomitant]
     Indication: PREMEDICATION
  7. ZOFRAN [Concomitant]
     Indication: PREMEDICATION
  8. DECADRON [Concomitant]
     Indication: PREMEDICATION

REACTIONS (3)
  - CONVULSION [None]
  - NEOPLASM [None]
  - PYREXIA [None]
